FAERS Safety Report 4504417-6 (Version None)
Quarter: 2004Q4

REPORT INFORMATION
  Report Type: 
  Country: None (occurrence: None)
  Receive Date: 20041117
  Receipt Date: 20041117
  Transmission Date: 20050328
  Serious: No
  Sender: FDA-Public Use
  Company Number: None

PATIENT
  Sex: Female
  Weight: 79.3795 kg

DRUGS (1)
  1. DEFEROXAMINE  2GM  HOSPIRA [Suspect]
     Indication: IRON METABOLISM DISORDER
     Dosage: 2 GM 5 DAYS/WEEK SUBCUTANEOUS
     Route: 058
     Dates: start: 20040701, end: 20040722

REACTIONS (4)
  - INJECTION SITE PAIN [None]
  - INJECTION SITE SWELLING [None]
  - INJECTION SITE VESICLES [None]
  - PHARMACEUTICAL PRODUCT COMPLAINT [None]
